FAERS Safety Report 7827692-9 (Version None)
Quarter: 2011Q4

REPORT INFORMATION
  Report Type: 
  Country: None (occurrence: None)
  Receive Date: 20111020
  Receipt Date: 20111012
  Transmission Date: 20120403
  Serious: Yes (Other)
  Sender: FDA-Public Use
  Company Number: US-ABBOTT-04P-163-0250383-00

PATIENT
  Sex: Male
  Weight: 95.34 kg

DRUGS (12)
  1. HUMIRA [Suspect]
     Indication: RHEUMATOID ARTHRITIS
     Dosage: 3-4 INJECTIONS TAKEN
     Route: 058
     Dates: start: 20030101, end: 20030101
  2. PAIN PILL [Concomitant]
     Indication: PAIN
     Route: 048
  3. LORTAB [Concomitant]
     Indication: PAIN
  4. PREDNISONE [Concomitant]
     Indication: RHEUMATOID ARTHRITIS
     Route: 048
  5. HALDOL [Concomitant]
     Indication: PRODUCT USED FOR UNKNOWN INDICATION
  6. LISINOPRIL [Concomitant]
     Indication: HYPERTENSION
  7. MULTI-VITAMIN [Concomitant]
     Indication: VITAMIN SUPPLEMENTATION
  8. WATER PILL [Concomitant]
     Indication: FLUID RETENTION
     Route: 048
  9. VITAMIN TAB [Concomitant]
     Indication: PRODUCT USED FOR UNKNOWN INDICATION
     Route: 048
  10. MOBIC [Concomitant]
     Indication: RHEUMATOID ARTHRITIS
  11. RESPERIDOL [Concomitant]
     Indication: PRODUCT USED FOR UNKNOWN INDICATION
  12. CELEBREX [Concomitant]
     Indication: RHEUMATOID ARTHRITIS
     Route: 048

REACTIONS (12)
  - HYPOAESTHESIA [None]
  - GUILLAIN-BARRE SYNDROME [None]
  - VITILIGO [None]
  - HISTIOCYTIC NECROTISING LYMPHADENITIS [None]
  - LOCALISED INFECTION [None]
  - RASH [None]
  - MUSCULAR WEAKNESS [None]
  - ACTIVITIES OF DAILY LIVING IMPAIRED [None]
  - ABASIA [None]
  - INFECTION [None]
  - MULTIPLE SCLEROSIS [None]
  - SKIN DISCOLOURATION [None]
